FAERS Safety Report 5911319-7 (Version None)
Quarter: 2008Q4

REPORT INFORMATION
  Report Type: 
  Country: None (occurrence: None)
  Receive Date: 20081007
  Receipt Date: 20080930
  Transmission Date: 20090506
  Serious: No
  Sender: FDA-Public Use
  Company Number: US-B.I. PHARMACEUTICALS,INC./RIDGEFIELD-2008-BP-15109BP

PATIENT
  Sex: Male

DRUGS (3)
  1. VIRAMUNE [Suspect]
     Indication: HIV INFECTION
     Dosage: 400MG
     Route: 048
     Dates: start: 20080501
  2. EPIVIR [Concomitant]
     Indication: HIV INFECTION
  3. ABACAVIR [Concomitant]
     Indication: HIV INFECTION

REACTIONS (1)
  - LABORATORY TEST ABNORMAL [None]
